FAERS Safety Report 17291618 (Version 1)
Quarter: 2020Q1

REPORT INFORMATION
  Report Type: Report from Study
  Country: CO (occurrence: CO)
  Receive Date: 20200121
  Receipt Date: 20200121
  Transmission Date: 20200409
  Serious: Yes (Hospitalization, Other)
  Sender: FDA-Public Use
  Company Number: CO-BAYER-2019-199020

PATIENT
  Sex: Male

DRUGS (2)
  1. AMBRISENTAN [Concomitant]
     Active Substance: AMBRISENTAN
     Dosage: UNK
  2. ADEMPAS [Suspect]
     Active Substance: RIOCIGUAT
     Indication: PULMONARY ARTERIAL HYPERTENSION
     Dosage: 1 DF, Q8HR
     Route: 048
     Dates: start: 20170426

REACTIONS (11)
  - Inflammation [Unknown]
  - Depressed mood [None]
  - Psychiatric decompensation [None]
  - Cardiac failure [Unknown]
  - Dyspnoea [None]
  - Somnolence [None]
  - Skin discolouration [Unknown]
  - Lip discolouration [Unknown]
  - Swelling [Unknown]
  - Hypotension [Unknown]
  - Oxygen saturation decreased [Unknown]
